FAERS Safety Report 6444545-1 (Version None)
Quarter: 2009Q4

REPORT INFORMATION
  Report Type: 
  Country: None (occurrence: None)
  Receive Date: 20091118
  Receipt Date: 20090728
  Transmission Date: 20100525
  Serious: No
  Sender: FDA-Public Use
  Company Number: A0799133A

PATIENT
  Age: 75 Year
  Sex: Male

DRUGS (5)
  1. COREG CR [Suspect]
     Indication: HYPERTENSION
     Dosage: 20MG TWICE PER DAY
     Route: 048
     Dates: start: 20090725
  2. NORVASC [Concomitant]
  3. MICARDIS [Concomitant]
  4. HYDROCHLOROTHIAZIDE [Concomitant]
  5. INSULIN [Concomitant]

REACTIONS (1)
  - NAUSEA [None]
